FAERS Safety Report 12368453 (Version 1)
Quarter: 2016Q2

REPORT INFORMATION
  Report Type: Spontaneous
  Country: US (occurrence: US)
  Receive Date: 20160513
  Receipt Date: 20160513
  Transmission Date: 20160815
  Serious: No
  Sender: FDA-Public Use
  Company Number: US-G+W LABS-GW2016US000001

PATIENT

DRUGS (1)
  1. FLUTICASONE PROPIONATE. [Suspect]
     Active Substance: FLUTICASONE PROPIONATE
     Indication: ECZEMA
     Dosage: UNK
     Route: 065

REACTIONS (3)
  - Off label use [None]
  - Drug ineffective [Unknown]
  - Product use issue [Unknown]
